FAERS Safety Report 7703417-2 (Version None)
Quarter: 2011Q3

REPORT INFORMATION
  Report Type: 
  Country: None (occurrence: None)
  Receive Date: 20110823
  Receipt Date: 20110823
  Transmission Date: 20111222
  Serious: No
  Sender: FDA-Public Use
  Company Number: None

PATIENT
  Age: 64 Year
  Sex: Female
  Weight: 66.678 kg

DRUGS (3)
  1. METHYLPREDNISOLONE ACETATE [Suspect]
     Indication: LIGAMENT RUPTURE
     Dosage: 1 CC
     Dates: start: 20110711, end: 20110711
  2. METHYLPREDNISOLONE ACETATE [Suspect]
     Indication: ARTHRALGIA
     Dosage: 1 CC
     Dates: start: 20110711, end: 20110711
  3. METHYLPREDNISOLONE ACETATE [Suspect]
     Indication: JOINT SWELLING
     Dosage: 1 CC
     Dates: start: 20110711, end: 20110711

REACTIONS (6)
  - PAIN IN EXTREMITY [None]
  - LIGAMENT SPRAIN [None]
  - FEELING HOT [None]
  - ERYTHEMA [None]
  - MUSCLE SPASMS [None]
  - HYPERHIDROSIS [None]
